FAERS Safety Report 19501759 (Version 1)
Quarter: 2021Q3

REPORT INFORMATION
  Report Type: Spontaneous
  Country: CN (occurrence: CN)
  Receive Date: 20210707
  Receipt Date: 20210707
  Transmission Date: 20211014
  Serious: Yes (Other)
  Sender: FDA-Public Use
  Company Number: CN-GLAXOSMITHKLINE-CN2021GSK147172

PATIENT
  Age: 40 Year
  Sex: Female
  Weight: 60 kg

DRUGS (1)
  1. ZEJULA [Suspect]
     Active Substance: NIRAPARIB
     Indication: OVARIAN CANCER
     Dosage: 100 MG, QD
     Route: 048
     Dates: start: 20210426, end: 20210614

REACTIONS (6)
  - White blood cell count decreased [Not Recovered/Not Resolved]
  - Asthenia [Unknown]
  - Toothache [Unknown]
  - Pulpitis dental [Unknown]
  - Gingival bleeding [Unknown]
  - Conjunctival haemorrhage [Unknown]

NARRATIVE: CASE EVENT DATE: 20210526
